FAERS Safety Report 8645722 (Version 8)
Quarter: 2014Q3

REPORT INFORMATION
  Report Type: Report from Study
  Country: PL (occurrence: PL)
  Receive Date: 20120702
  Receipt Date: 20140925
  Transmission Date: 20150326
  Serious: Yes (Death, Hospitalization, Disabling, Other)
  Sender: FDA-Public Use
  Company Number: PL-BAYER-2012-060706

PATIENT
  Age: 63 Year
  Sex: Male
  Weight: 72 kg

DRUGS (11)
  1. SORAFENIB (RAF KINASE INHIBITOR) [Suspect]
     Active Substance: SORAFENIB
     Indication: METASTATIC RENAL CELL CARCINOMA
     Dosage: UNK
     Route: 048
     Dates: start: 20100718
  2. GLUCOSE INJECTION [Concomitant]
     Indication: CHOLANGITIS
     Dosage: 500 ML DAILY DOSE
     Route: 042
     Dates: start: 20111201, end: 20111210
  3. ZYRTEC [Concomitant]
     Active Substance: CETIRIZINE HYDROCHLORIDE
     Indication: PHOTODERMATOSIS
     Dosage: 10 MG DAILY DOSE
     Route: 048
     Dates: start: 1980
  4. CIPROPOL [Concomitant]
     Indication: CHOLANGITIS
     Dosage: 1000 MG DAILY DOSE
     Route: 048
     Dates: start: 20120426, end: 20120524
  5. GALEC 20 [Concomitant]
     Indication: PROPHYLAXIS
     Dosage: 20 MG DAILY DOSE
     Route: 048
     Dates: start: 20120509
  6. SORAFENIB (RAF KINASE INHIBITOR) [Suspect]
     Active Substance: SORAFENIB
     Indication: METASTATIC RENAL CELL CARCINOMA
     Dosage: UNK
     Route: 048
     Dates: start: 20080519
  7. CLEXANE [Concomitant]
     Active Substance: ENOXAPARIN SODIUM
     Indication: CHOLANGITIS
     Dosage: 40 MG DAILY DOSE
     Route: 058
     Dates: start: 20111201, end: 20111210
  8. HEPA-MERZ [ORNITHINE ASPARTATE] [Concomitant]
     Indication: CHOLANGITIS
     Dosage: 10 MG DAILY DOSE
     Route: 042
     Dates: start: 20111201, end: 20111210
  9. SORAFENIB (RAF KINASE INHIBITOR) [Suspect]
     Active Substance: SORAFENIB
     Indication: METASTATIC RENAL CELL CARCINOMA
     Dosage: 400 MG, QD
     Route: 048
     Dates: start: 20120107, end: 20120514
  10. CIPROPOL [Concomitant]
     Indication: CHOLANGITIS
     Dosage: 1000 MG DAILY DOSE
     Route: 048
     Dates: start: 20111201, end: 20111210
  11. BIOTRAKSON [Concomitant]
     Indication: CHOLANGITIS
     Dosage: 2 G DAILY DOSE
     Route: 042
     Dates: start: 20111201, end: 20111210

REACTIONS (1)
  - Malignant neoplasm of ampulla of Vater [Fatal]

NARRATIVE: CASE EVENT DATE: 20111130
